FAERS Safety Report 8045265-2 (Version None)
Quarter: 2012Q1

REPORT INFORMATION
  Report Type: 
  Country: None (occurrence: None)
  Receive Date: 20120113
  Receipt Date: 20120110
  Transmission Date: 20120608
  Serious: Yes (Hospitalization)
  Sender: FDA-Public Use
  Company Number: FR-PFIZER INC-2012006560

PATIENT
  Age: 18 Year
  Sex: Female

DRUGS (1)
  1. IBUPROFEN (ADVIL) [Suspect]
     Indication: HEADACHE
     Dosage: IN THE WEEK
     Route: 048
     Dates: start: 20110605, end: 20110609

REACTIONS (2)
  - SKIN TEST NEGATIVE [None]
  - TOXIC EPIDERMAL NECROLYSIS [None]
